FAERS Safety Report 10029256 (Version 1)
Quarter: 2014Q1

REPORT INFORMATION
  Report Type: Spontaneous
  Country: US (occurrence: US)
  Receive Date: 20140321
  Receipt Date: 20140321
  Transmission Date: 20141002
  Serious: Yes (Other)
  Sender: FDA-Public Use
  Company Number: PHEH2014US005407

PATIENT
  Age: 47 Year
  Sex: Female
  Weight: 52.15 kg

DRUGS (7)
  1. CARBAMAZEPINE [Suspect]
     Indication: NEURALGIA
     Dosage: 2 DF DAILY (1 DF AT 5 AM, 1 DF AT 5 PM)
  2. CARBAMAZEPINE [Suspect]
     Indication: NERVE INJURY
  3. LISINOPRIL [Concomitant]
     Indication: MIGRAINE
     Dosage: UNK UKN, UNK
  4. LYRICA [Concomitant]
     Indication: NERVE INJURY
     Dosage: UNK UKN, UNK
     Dates: start: 201310
  5. DOXEPIN [Concomitant]
     Indication: MIGRAINE
     Dosage: UNK UKN, UNK
  6. PERCOCET [Concomitant]
     Indication: NERVE INJURY
     Dosage: UNK UKN, UNK
  7. IMITREX DF [Concomitant]
     Indication: MIGRAINE
     Dosage: UNK UKN, UNK

REACTIONS (9)
  - Cerebrovascular accident [Unknown]
  - Toxicity to various agents [Recovered/Resolved]
  - Feeling drunk [Recovered/Resolved]
  - Dysphagia [Recovered/Resolved]
  - Gait disturbance [Recovered/Resolved]
  - Paraesthesia oral [Recovered/Resolved]
  - Nausea [Recovered/Resolved]
  - Paraesthesia [Recovered/Resolved]
  - Anticonvulsant drug level increased [Unknown]
